FAERS Safety Report 9586498 (Version 2)
Quarter: 2013Q4

REPORT INFORMATION
  Report Type: Report from Study
  Country: US (occurrence: US)
  Receive Date: 20131003
  Receipt Date: 20131003
  Transmission Date: 20140711
  Serious: Yes (Death)
  Sender: FDA-Public Use
  Company Number: US-ROCHE-1270113

PATIENT
  Age: 73 Year
  Sex: Male

DRUGS (1)
  1. XELODA [Suspect]
     Indication: COLON CANCER
     Route: 048
     Dates: start: 20130718

REACTIONS (4)
  - Death [Fatal]
  - Dizziness [Recovered/Resolved]
  - Dizziness [Recovered/Resolved with Sequelae]
  - Temperature intolerance [Not Recovered/Not Resolved]
